FAERS Safety Report 10395859 (Version 1)
Quarter: 2014Q3

REPORT INFORMATION
  Report Type: Spontaneous
  Country: FR (occurrence: FR)
  Receive Date: 20140820
  Receipt Date: 20140820
  Transmission Date: 20150326
  Serious: Yes (Hospitalization, Other)
  Sender: FDA-Public Use
  Company Number: FR-JNJFOC-20140813178

PATIENT

DRUGS (2)
  1. INFLIXIMAB, RECOMBINANT [Suspect]
     Active Substance: INFLIXIMAB
     Indication: SPONDYLOARTHROPATHY
     Route: 042
     Dates: start: 200512, end: 201201
  2. INFLIXIMAB, RECOMBINANT [Suspect]
     Active Substance: INFLIXIMAB
     Indication: RHEUMATOID ARTHRITIS
     Route: 042
     Dates: start: 200512, end: 201201

REACTIONS (8)
  - Cardiovascular disorder [Unknown]
  - Mental disorder [Unknown]
  - Neoplasm [Unknown]
  - Infection [Unknown]
  - Infusion related reaction [Unknown]
  - Drug specific antibody present [Unknown]
  - Gastrointestinal disorder [Unknown]
  - Skin reaction [Unknown]
